FAERS Safety Report 8861991 (Version 1)
Quarter: 2012Q4

REPORT INFORMATION
  Report Type: 
  Country: US (occurrence: US)
  Receive Date: 20121025
  Receipt Date: 20121025
  Transmission Date: 20130627
  Serious: No
  Sender: FDA-Public Use
  Company Number: US-PFIZER INC-2012265677

PATIENT
  Age: 63 Year
  Sex: Female
  Weight: 58.96 kg

DRUGS (5)
  1. NEURONTIN [Suspect]
     Indication: HERNIATED DISC
     Dosage: 800 mg, 4x/day
  2. NEURONTIN [Suspect]
     Indication: OSTEOARTHRITIS
  3. NEURONTIN [Suspect]
     Indication: DEGENERATIVE JOINT DISEASE
  4. LIDODERM [Concomitant]
     Indication: PAIN
     Dosage: UNK
  5. VALIUM [Concomitant]
     Indication: NERVE PAIN
     Dosage: UNK

REACTIONS (3)
  - Synovial cyst [Not Recovered/Not Resolved]
  - Exostosis [Not Recovered/Not Resolved]
  - Tooth fracture [Unknown]
